FAERS Safety Report 9745154 (Version 2)
Quarter: 2013Q4

REPORT INFORMATION
  Report Type: Spontaneous
  Country: KR (occurrence: KR)
  Receive Date: 20131211
  Receipt Date: 20131213
  Transmission Date: 20140711
  Serious: Yes (Hospitalization, Other)
  Sender: FDA-Public Use
  Company Number: KR-009507513-1312KOR004254

PATIENT
  Sex: Female

DRUGS (1)
  1. FOSAMAX 70MG TABLET [Suspect]
     Indication: OSTEOPOROSIS
     Dosage: 70 MG, QW
     Route: 048
     Dates: start: 1993

REACTIONS (6)
  - Loss of consciousness [Recovered/Resolved]
  - Bone density abnormal [Unknown]
  - Gastric disorder [Unknown]
  - Therapeutic response decreased [Unknown]
  - Drug dose omission [Unknown]
  - Medication error [Unknown]
